FAERS Safety Report 17993921 (Version 1)
Quarter: 2020Q3

REPORT INFORMATION
  Report Type: Spontaneous
  Country: DE (occurrence: DE)
  Receive Date: 20200708
  Receipt Date: 20200708
  Transmission Date: 20201103
  Serious: Yes (Other)
  Sender: FDA-Public Use
  Company Number: NVSC2020DE185876

PATIENT
  Sex: Male

DRUGS (9)
  1. PRAMIPEXOLE. [Suspect]
     Active Substance: PRAMIPEXOLE
     Indication: RESTLESS LEGS SYNDROME
     Dosage: 2 OT, QD
     Route: 065
     Dates: end: 202003
  2. PREGABALIN BETA [Suspect]
     Active Substance: PREGABALIN
     Dosage: 100 MG, QD
     Route: 048
     Dates: start: 202001
  3. PREGABALIN BETA [Suspect]
     Active Substance: PREGABALIN
     Indication: RESTLESS LEGS SYNDROME
     Dosage: 25 MG, QD
     Route: 048
     Dates: start: 202001
  4. TARGIN [Suspect]
     Active Substance: NALOXONE HYDROCHLORIDE\OXYCODONE HYDROCHLORIDE
     Dosage: 2 UNK (5 MG AT NOON AND 10 MG FOR THE NIGHT)
     Route: 065
  5. NALOXONE HYDROCHLORIDE,OXYCODONE HYDROCHLORIDE [Suspect]
     Active Substance: NALOXONE HYDROCHLORIDE\OXYCODONE HYDROCHLORIDE
     Indication: PRODUCT USED FOR UNKNOWN INDICATION
     Dosage: 7.5 MG, UNKNOWN (MOSTLY ONLY WITH 5 / 2.5 MG)
     Route: 065
  6. TARGIN [Suspect]
     Active Substance: NALOXONE HYDROCHLORIDE\OXYCODONE HYDROCHLORIDE
     Indication: RESTLESS LEGS SYNDROME
     Dosage: 40 MG, QD (0 ? 20 ? 20)
     Route: 048
     Dates: start: 202003, end: 202003
  7. TARGIN [Suspect]
     Active Substance: NALOXONE HYDROCHLORIDE\OXYCODONE HYDROCHLORIDE
     Dosage: 2 UNK (10 MG AT NOON AND 20 MG FOR THE NIGHT AFTER A FEW YEARS)
     Route: 048
  8. NALOXONE HYDROCHLORIDE,OXYCODONE HYDROCHLORIDE [Suspect]
     Active Substance: NALOXONE HYDROCHLORIDE\OXYCODONE HYDROCHLORIDE
     Dosage: 15 MG, UNKNOWN (SOMETIMES WITH 15 MG = 10 / 5 +5 / 2.5)
     Route: 065
  9. NALOXONE HYDROCHLORIDE,OXYCODONE HYDROCHLORIDE [Suspect]
     Active Substance: NALOXONE HYDROCHLORIDE\OXYCODONE HYDROCHLORIDE
     Dosage: 1 DF, UNKNOWN
     Route: 065

REACTIONS (1)
  - Sleep apnoea syndrome [Not Recovered/Not Resolved]

NARRATIVE: CASE EVENT DATE: 202003
